FAERS Safety Report 14936439 (Version 1)
Quarter: 2018Q2

REPORT INFORMATION
  Report Type: Spontaneous
  Country: US (occurrence: US)
  Receive Date: 20180525
  Receipt Date: 20180525
  Transmission Date: 20180711
  Serious: No
  Sender: FDA-Public Use
  Company Number: US-USPHARMA LIMITED-2018-US-000003

PATIENT
  Sex: Female

DRUGS (6)
  1. NITROGLYCERIN. [Suspect]
     Active Substance: NITROGLYCERIN
     Indication: ANGINA PECTORIS
     Route: 065
  2. LISINOPRIL. [Concomitant]
     Active Substance: LISINOPRIL
     Indication: PRODUCT USED FOR UNKNOWN INDICATION
     Route: 065
  3. DOXEPIN [Concomitant]
     Active Substance: DOXEPIN
     Indication: PRODUCT USED FOR UNKNOWN INDICATION
     Route: 065
  4. NITRO-DUR [Suspect]
     Active Substance: NITROGLYCERIN
     Indication: ANGINA PECTORIS
     Route: 061
  5. SYNTHROID [Concomitant]
     Active Substance: LEVOTHYROXINE SODIUM
     Route: 065
  6. SINGULAIR [Concomitant]
     Active Substance: MONTELUKAST SODIUM
     Route: 065

REACTIONS (2)
  - Blister [Recovered/Resolved]
  - Skin exfoliation [Recovered/Resolved]
